FAERS Safety Report 12696305 (Version 1)
Quarter: 2016Q3

REPORT INFORMATION
  Report Type: Report from Study
  Country: AU (occurrence: AU)
  Receive Date: 20160830
  Receipt Date: 20160830
  Transmission Date: 20161109
  Serious: Yes (Hospitalization)
  Sender: FDA-Public Use
  Company Number: AU-ROCHE-1821505

PATIENT
  Age: 52 Year
  Sex: Male
  Weight: 108 kg

DRUGS (4)
  1. ARGININE [Concomitant]
     Active Substance: ARGININE
     Indication: ANGINA PECTORIS
     Dosage: PRN
     Route: 065
     Dates: start: 20151229
  2. CANDESARTAN [Concomitant]
     Active Substance: CANDESARTAN
     Indication: HYPERTENSION
     Dosage: 32 MG, UNK
     Route: 065
     Dates: start: 20151130, end: 20160812
  3. RANIBIZUMAB [Suspect]
     Active Substance: RANIBIZUMAB
     Indication: DIABETIC RETINAL OEDEMA
     Route: 050
     Dates: start: 20160602, end: 20160602
  4. RANIBIZUMAB [Suspect]
     Active Substance: RANIBIZUMAB
     Route: 050
     Dates: start: 20160811, end: 20160811

REACTIONS (1)
  - Cerebrovascular accident [Recovering/Resolving]

NARRATIVE: CASE EVENT DATE: 20160813
